FAERS Safety Report 16485697 (Version 1)
Quarter: 2019Q2

REPORT INFORMATION
  Report Type: Spontaneous
  Country: FR (occurrence: FR)
  Receive Date: 20190627
  Receipt Date: 20190627
  Transmission Date: 20190711
  Serious: Yes (Other)
  Sender: FDA-Public Use
  Company Number: FR-MYLANLABS-2019M1059536

PATIENT
  Age: 89 Year
  Sex: Male
  Weight: 77 kg

DRUGS (7)
  1. CEFTRIAXONE                        /00672202/ [Suspect]
     Active Substance: CEFTRIAXONE
     Indication: LUNG DISORDER
     Dosage: 1 GRAM, QD
     Route: 042
     Dates: start: 20170907, end: 20170911
  2. PRIMPERAN [Suspect]
     Active Substance: METOCLOPRAMIDE HYDROCHLORIDE
     Indication: NAUSEA
     Dosage: 1 DOSAGE FORM
     Route: 042
     Dates: start: 20170909, end: 20170909
  3. RULID [Suspect]
     Active Substance: ROXITHROMYCIN
     Indication: LUNG DISORDER
     Dosage: 2 DOSAGE FORM, QD
     Route: 048
     Dates: start: 20170910, end: 20170911
  4. XTANDI [Suspect]
     Active Substance: ENZALUTAMIDE
     Indication: PROSTATE CANCER
     Dosage: 4 DOSAGE FORM, QD
     Route: 048
     Dates: start: 201808, end: 20180910
  5. PREVISCAN                          /00789001/ [Concomitant]
     Active Substance: FLUINDIONE
     Dosage: UNK
  6. OROZAMUDOL 50 MG, COMPRIM? ORODISPERSIBLE [Suspect]
     Active Substance: TRAMADOL
     Indication: PAIN
     Dosage: 1 DOSAGE FORM, QD
     Route: 048
     Dates: start: 20180908, end: 20180911
  7. INEXIUM                            /01479302/ [Concomitant]
     Active Substance: ESOMEPRAZOLE MAGNESIUM
     Dosage: UNK

REACTIONS (1)
  - Erythema [Recovered/Resolved]

NARRATIVE: CASE EVENT DATE: 20170910
